FAERS Safety Report 5102986-9 (Version None)
Quarter: 2006Q3

REPORT INFORMATION
  Report Type: 
  Country: None (occurrence: None)
  Receive Date: 20060908
  Receipt Date: 20060907
  Transmission Date: 20061208
  Serious: Yes (Hospitalization, Other)
  Sender: FDA-Public Use
  Company Number: 2006AL002528

PATIENT
  Age: 82 Year
  Sex: Female

DRUGS (10)
  1. DICLOFENAC SODIUM DELAYED-RELEASE TABLET, 50 MG (PUREPAC) (DICLOFENAC [Suspect]
     Indication: BACK PAIN
     Dosage: 50 MG; TID; PO
     Route: 048
     Dates: start: 20060523
  2. ASPIRIN [Concomitant]
  3. BETAHISTINE [Concomitant]
  4. CINNARIZINE [Concomitant]
  5. CO-AMILOFRUSE [Concomitant]
  6. CODEINE [Concomitant]
  7. FELODIPINE [Concomitant]
  8. ISOSORBIDE MONONITRATE [Concomitant]
  9. NICORANDIL [Concomitant]
  10. TRIPTAFEN [Concomitant]

REACTIONS (3)
  - DIZZINESS [None]
  - DYSPNOEA [None]
  - HAEMOGLOBIN DECREASED [None]
